FAERS Safety Report 6521748-9 (Version None)
Quarter: 2009Q4

REPORT INFORMATION
  Report Type: 
  Country: None (occurrence: None)
  Receive Date: 20091230
  Receipt Date: 20091224
  Transmission Date: 20100525
  Serious: Yes (Life-Threatening, Hospitalization)
  Sender: FDA-Public Use
  Company Number: JP-ASTRAZENECA-2009SE32904

PATIENT
  Age: 31741 Day
  Sex: Female
  Weight: 42 kg

DRUGS (7)
  1. ECARD COMBINATION [Suspect]
     Indication: HYPERTENSION
     Route: 048
     Dates: start: 20090601, end: 20091215
  2. ALDACTONE [Suspect]
     Route: 048
     Dates: end: 20091215
  3. CALNATE [Suspect]
     Route: 048
     Dates: end: 20091215
  4. LAC B [Concomitant]
     Route: 048
     Dates: end: 20091215
  5. LASIX [Concomitant]
     Route: 048
     Dates: end: 20091215
  6. ZYLORIC [Concomitant]
     Route: 048
     Dates: end: 20091215
  7. DIGITOXIN INJ [Concomitant]
     Route: 048
     Dates: end: 20091215

REACTIONS (2)
  - METABOLIC ACIDOSIS [None]
  - RENAL FAILURE ACUTE [None]
